FAERS Safety Report 9114003 (Version 1)
Quarter: 2013Q1

REPORT INFORMATION
  Report Type: Spontaneous
  Country: US (occurrence: None)
  Receive Date: 20130220
  Receipt Date: 20130220
  Transmission Date: 20140127
  Serious: Yes (Hospitalization)
  Sender: FDA-Public Use
  Company Number: None

PATIENT
  Sex: Female
  Weight: 102.4 kg

DRUGS (3)
  1. CARBOPLATIN [Suspect]
  2. ERLOTINIB [Suspect]
  3. PACLITACEL [Suspect]

REACTIONS (2)
  - Febrile neutropenia [None]
  - Blood culture positive [None]
